FAERS Safety Report 10747647 (Version 2)
Quarter: 2015Q1

REPORT INFORMATION
  Report Type: Spontaneous
  Country: US (occurrence: US)
  Receive Date: 20150129
  Receipt Date: 20150206
  Transmission Date: 20150721
  Serious: Yes (Death)
  Sender: FDA-Public Use
  Company Number: US-AMGEN-USASP2015007882

PATIENT
  Age: 94 Year
  Sex: Female
  Weight: 39.93 kg

DRUGS (1)
  1. PROLIA [Suspect]
     Active Substance: DENOSUMAB
     Indication: OSTEOPOROSIS
     Dosage: UNK
     Route: 065
     Dates: start: 201310

REACTIONS (3)
  - Pneumonia aspiration [Fatal]
  - Oesophageal obstruction [Fatal]
  - Respiratory arrest [Fatal]
